FAERS Safety Report 16793154 (Version 1)
Quarter: 2019Q3

REPORT INFORMATION
  Report Type: Spontaneous
  Country: ES (occurrence: ES)
  Receive Date: 20190911
  Receipt Date: 20190911
  Transmission Date: 20191005
  Serious: Yes (Hospitalization, Disabling, Other)
  Sender: FDA-Public Use
  Company Number: ES-AMGEN-ESPSP2019145188

PATIENT
  Age: 64 Year
  Sex: Female
  Weight: 112 kg

DRUGS (6)
  1. PROLIA [Suspect]
     Active Substance: DENOSUMAB
     Indication: OSTEOPOROSIS
     Dosage: 60 MILLIGRAM, Q6MO (180 DAYS)
     Route: 058
     Dates: start: 20181025
  2. PARACETAMOL [Concomitant]
     Active Substance: ACETAMINOPHEN
     Dosage: 1.000 MILLIGRAM, 40 TABLETS
  3. ENALAPRIL [Concomitant]
     Active Substance: ENALAPRIL
  4. ESCITALOPRAM [Concomitant]
     Active Substance: ESCITALOPRAM OXALATE
  5. FOSTERNEXT HALER [Concomitant]
     Dosage: 200 MILLIGRAM/6MG FOR
  6. HIDROFEROL [Concomitant]
     Active Substance: CALCIFEDIOL
     Dosage: 266 MILLIGRAM,10 DRINKABLE BLISTERS OF 1,5 ML

REACTIONS (3)
  - Multiple fractures [Recovering/Resolving]
  - Spinal fracture [Recovering/Resolving]
  - Rebound effect [Recovering/Resolving]

NARRATIVE: CASE EVENT DATE: 20190623
